FAERS Safety Report 7206333-8 (Version None)
Quarter: 2011Q1

REPORT INFORMATION
  Report Type: 
  Country: None (occurrence: None)
  Receive Date: 20110103
  Receipt Date: 20110103
  Transmission Date: 20110831
  Serious: Yes (Hospitalization)
  Sender: FDA-Public Use
  Company Number: PHHO2008FR10916

PATIENT
  Sex: Female
  Weight: 44 kg

DRUGS (2)
  1. PLACEBO [Suspect]
     Indication: CARCINOID TUMOUR
     Dosage: UNK
     Dates: start: 20070712, end: 20080829
  2. SANDOSTATIN LAR [Suspect]
     Indication: CARCINOID TUMOUR
     Dosage: UNK
     Dates: start: 20070711, end: 20080806

REACTIONS (3)
  - WEIGHT DECREASED [None]
  - ABDOMINAL PAIN [None]
  - ASTHENIA [None]
